FAERS Safety Report 7369229-7 (Version None)
Quarter: 2011Q1

REPORT INFORMATION
  Report Type: 
  Country: None (occurrence: None)
  Receive Date: 20110323
  Receipt Date: 20110315
  Transmission Date: 20110831
  Serious: Yes (Hospitalization)
  Sender: FDA-Public Use
  Company Number: IT-ROCHE-765338

PATIENT
  Sex: Male
  Weight: 80 kg

DRUGS (4)
  1. FLUOROURACIL [Suspect]
     Route: 042
  2. BEVACIZUMAB [Suspect]
     Dosage: LAST DOSE PRIOR TO TO SAE:  08 MARCH 2011.  DOSAGE FORM:  VIALS
     Route: 042
     Dates: start: 20110208
  3. FOLINIC ACID [Suspect]
     Dosage: LAST DOSE PRIOR TO TO SAE:  08 MARCH 2011.  DOSAGE FORM:  VIALS
     Route: 042
     Dates: start: 20110208
  4. IRINOTECAN HYDROCHLORIDE [Suspect]
     Dosage: LAST DOSE PRIOR TO TO SAE:  08 MARCH 2011.  DOSAGE FORM:  VIALS
     Route: 042
     Dates: start: 20110208

REACTIONS (1)
  - CEREBROVASCULAR ACCIDENT [None]
